FAERS Safety Report 19194859 (Version 1)
Quarter: 2021Q2

REPORT INFORMATION
  Report Type: Other
  Country: CA (occurrence: CA)
  Receive Date: 20210429
  Receipt Date: 20210429
  Transmission Date: 20210717
  Serious: Yes (Other)
  Sender: FDA-Public Use
  Company Number: CA-SAOL THERAPEUTICS-2021SAO00153

PATIENT
  Age: 50 Year
  Sex: Female

DRUGS (3)
  1. RED BLOOD CELLS [Concomitant]
     Active Substance: HUMAN RED BLOOD CELL
  2. WINRHO SDF [Suspect]
     Active Substance: HUMAN RHO(D) IMMUNE GLOBULIN
     Indication: IMMUNE THROMBOCYTOPENIA
     Dosage: 10000 IU, ONCE
     Route: 030
  3. PLATELETS [Concomitant]
     Active Substance: HUMAN PLATELET, ALLOGENIC

REACTIONS (5)
  - Coombs test positive [Unknown]
  - Packed red blood cell transfusion [Unknown]
  - Haemoglobin decreased [Unknown]
  - Rhesus antibodies [Unknown]
  - Intravascular haemolysis [Unknown]
